FAERS Safety Report 23053519 (Version 3)
Quarter: 2023Q4

REPORT INFORMATION
  Report Type: Spontaneous
  Country: US (occurrence: US)
  Receive Date: 20231011
  Receipt Date: 20231101
  Transmission Date: 20240110
  Serious: No
  Sender: FDA-Public Use
  Company Number: US-OPELLA-2023OHG009776

PATIENT

DRUGS (1)
  1. ICY HOT VANISHING SCENT [Suspect]
     Active Substance: MENTHOL
     Indication: Myalgia
     Dosage: STRENGTH: 1.775 G/71 G
     Route: 065

REACTIONS (2)
  - Drug ineffective [Unknown]
  - No adverse event [Unknown]
